FAERS Safety Report 9336362 (Version 3)
Quarter: 2013Q3

REPORT INFORMATION
  Report Type: Spontaneous
  Country: CA (occurrence: CA)
  Receive Date: 20130607
  Receipt Date: 20130911
  Transmission Date: 20140515
  Serious: Yes (Death, Hospitalization, Other)
  Sender: FDA-Public Use
  Company Number: CA-AMGEN-CANSP2013039864

PATIENT
  Age: 94 Year
  Sex: Female
  Weight: 72.73 kg

DRUGS (12)
  1. PROLIA [Suspect]
     Indication: OSTEOPOROSIS POSTMENOPAUSAL
     Dosage: UNK
     Route: 065
     Dates: start: 20120605
  2. TYLENOL                            /00020001/ [Concomitant]
     Dosage: 650 MG, QID
     Route: 048
  3. AMLODIPINE [Concomitant]
     Dosage: 2.5 MG, QD
     Route: 048
  4. VITAMIN D3 [Concomitant]
     Dosage: 1000 UNIT, QD
     Route: 048
  5. PLAVIX [Concomitant]
     Dosage: 75 MG, QD
     Route: 048
  6. DALTEPARIN [Concomitant]
     Dosage: 5000 UNIT, QD
     Route: 058
  7. FERROUS GLUCONATE [Concomitant]
     Dosage: 300 MG, TID
     Route: 048
  8. LANSOPRAZOLE [Concomitant]
     Dosage: 30 MG, QD
     Route: 048
  9. ONDANSETRON [Concomitant]
     Dosage: 48 MG, Q6H, P.R.N
     Route: 048
  10. OXAZEPAM [Concomitant]
     Dosage: 2.5 MG, QHS
     Route: 048
  11. PSYLLIUM                           /01328801/ [Concomitant]
     Dosage: 5.8 G, QD IN 250 ML IN LIQUID
     Route: 048
  12. VENTOLIN                           /00139501/ [Concomitant]
     Dosage: UNK UNK, AS NECESSARY

REACTIONS (30)
  - Cardiac failure congestive [Fatal]
  - Hepatic cirrhosis [Fatal]
  - Clostridium difficile colitis [Unknown]
  - Pulmonary hypertension [Unknown]
  - Aortic stenosis [Unknown]
  - Depression [Unknown]
  - Dilatation atrial [Unknown]
  - Mitral valve calcification [Unknown]
  - Mitral valve incompetence [Unknown]
  - Tricuspid valve incompetence [Unknown]
  - Cholecystectomy [Unknown]
  - Appendicectomy [Unknown]
  - Hernia repair [Unknown]
  - Rheumatoid arthritis [Unknown]
  - Carotid artery stenosis [Unknown]
  - Cerebrovascular disorder [Unknown]
  - Atrial fibrillation [Unknown]
  - Cardiac septal hypertrophy [Unknown]
  - Generalised oedema [Unknown]
  - Ascites [Unknown]
  - Cellulitis [Unknown]
  - Oedema peripheral [Unknown]
  - Sleep disorder due to general medical condition, insomnia type [Unknown]
  - Dysphagia [Unknown]
  - Leukocytosis [Unknown]
  - Diverticulitis [Unknown]
  - Dyslipidaemia [Unknown]
  - Hearing impaired [Unknown]
  - Cataract [Unknown]
  - Osteoarthritis [Unknown]
